FAERS Safety Report 10608709 (Version 4)
Quarter: 2015Q1

REPORT INFORMATION
  Report Type: Spontaneous
  Country: IT (occurrence: IT)
  Receive Date: 20141125
  Receipt Date: 20150203
  Transmission Date: 20150720
  Serious: Yes (Hospitalization)
  Sender: FDA-Public Use
  Company Number: IT-PFIZER INC-2014321678

PATIENT
  Age: 53 Year
  Sex: Female

DRUGS (1)
  1. XANAX [Suspect]
     Active Substance: ALPRAZOLAM
     Dosage: 0.25 MG (50 TABLETS)
     Route: 048
     Dates: start: 20141115, end: 20141115

REACTIONS (9)
  - Disorientation [Recovered/Resolved]
  - Sopor [Recovered/Resolved]
  - Dysarthria [Recovered/Resolved]
  - Drug abuse [Recovered/Resolved]
  - Self injurious behaviour [Recovered/Resolved]
  - Confusional state [Recovered/Resolved]
  - Memory impairment [Recovered/Resolved]
  - Disturbance in attention [Recovered/Resolved]
  - Alcohol abuse [Recovered/Resolved]

NARRATIVE: CASE EVENT DATE: 20141115
